FAERS Safety Report 7770986-6 (Version None)
Quarter: 2011Q3

REPORT INFORMATION
  Report Type: 
  Country: None (occurrence: None)
  Receive Date: 20110922
  Receipt Date: 20100915
  Transmission Date: 20111222
  Serious: Yes (Other)
  Sender: FDA-Public Use
  Company Number: US-ASTRAZENECA-2009UW02019

PATIENT
  Age: 33 Year
  Sex: Female
  Weight: 80.7 kg

DRUGS (15)
  1. SEROQUEL [Suspect]
     Route: 048
     Dates: start: 20050928, end: 20060514
  2. SEROQUEL [Suspect]
     Route: 048
     Dates: start: 20050928, end: 20060514
  3. SEROQUEL [Suspect]
     Indication: DEPRESSION
     Route: 048
     Dates: start: 20040101
  4. SEROQUEL [Suspect]
     Route: 048
     Dates: start: 20050901, end: 20060501
  5. SEROQUEL [Suspect]
     Route: 048
     Dates: start: 20050901, end: 20060501
  6. SEROQUEL [Suspect]
     Indication: MOOD SWINGS
     Route: 048
     Dates: start: 20040101
  7. ABILIFY [Concomitant]
     Dates: start: 20090101
  8. TEGRETOL [Concomitant]
     Dates: start: 20060101
  9. EQUANO [Concomitant]
     Dates: start: 20050101
  10. SEROQUEL [Suspect]
     Indication: BIPOLAR DISORDER
     Route: 048
     Dates: start: 20040101
  11. SEROQUEL [Suspect]
     Route: 048
     Dates: start: 20050928, end: 20060514
  12. SEROQUEL [Suspect]
     Route: 048
     Dates: start: 20050901, end: 20060501
  13. GEODON [Concomitant]
     Dates: start: 20050101
  14. DEPAKOTE [Concomitant]
     Dates: start: 20050101
  15. WELLBUTRIN [Concomitant]
     Dates: start: 20050101

REACTIONS (7)
  - OBESITY [None]
  - DIABETIC KETOACIDOSIS [None]
  - DIABETES MELLITUS [None]
  - HYPERLIPIDAEMIA [None]
  - BLOOD TRIGLYCERIDES INCREASED [None]
  - BLOOD CHOLESTEROL INCREASED [None]
  - TYPE 2 DIABETES MELLITUS [None]
